FAERS Safety Report 6383706-7 (Version None)
Quarter: 2009Q4

REPORT INFORMATION
  Report Type: 
  Country: None (occurrence: None)
  Receive Date: 20091001
  Receipt Date: 20090923
  Transmission Date: 20100525
  Serious: Yes (Death)
  Sender: FDA-Public Use
  Company Number: PH-PFIZER INC-2007005848

PATIENT
  Age: 46 Year

DRUGS (2)
  1. CEFOPERAZONE SODIUM, SULBACTAM SODIUM [Suspect]
     Indication: SKIN INFECTION
     Dosage: 1.5 G, 4X/DAY
     Route: 042
     Dates: start: 20060819, end: 20060826
  2. CEFOPERAZONE SODIUM, SULBACTAM SODIUM [Suspect]
     Indication: SOFT TISSUE INFECTION

REACTIONS (1)
  - DEATH [None]
